FAERS Safety Report 23077252 (Version 1)
Quarter: 2023Q4

REPORT INFORMATION
  Report Type: Spontaneous
  Country: US (occurrence: US)
  Receive Date: 20231018
  Receipt Date: 20231018
  Transmission Date: 20240109
  Serious: Yes (Other)
  Sender: FDA-Public Use
  Company Number: US-Merck Healthcare KGaA-2023481445

PATIENT
  Sex: Male

DRUGS (3)
  1. REBIF [Suspect]
     Active Substance: INTERFERON BETA-1A
     Indication: Multiple sclerosis
     Dosage: WEEK FIRST AND SECOND
     Route: 058
     Dates: start: 202309
  2. REBIF [Suspect]
     Active Substance: INTERFERON BETA-1A
     Dosage: WEEK THIRD AND FOURTH
     Route: 058
  3. REBIF [Suspect]
     Active Substance: INTERFERON BETA-1A
     Route: 058

REACTIONS (4)
  - Depressed level of consciousness [Unknown]
  - Fatigue [Unknown]
  - Disturbance in attention [Unknown]
  - Physical disability [Unknown]
